FAERS Safety Report 5374747-7 (Version None)
Quarter: 2007Q2

REPORT INFORMATION
  Report Type: 
  Country: None (occurrence: None)
  Receive Date: 20070629
  Receipt Date: 20070625
  Transmission Date: 20071010
  Serious: Yes (Life-Threatening, Other)
  Sender: FDA-Public Use
  Company Number: PHBS2005JP18197

PATIENT
  Age: 61 Year
  Sex: Female
  Weight: 59 kg

DRUGS (10)
  1. VOLTAREN [Suspect]
     Indication: PYREXIA
     Dosage: 37.5 MG/DAY
     Route: 048
     Dates: start: 20051109, end: 20051110
  2. LOXONIN [Suspect]
     Indication: PYREXIA
     Dosage: 60 MG, TID
     Route: 048
     Dates: start: 20051110, end: 20051113
  3. DACARBAZINE [Suspect]
     Indication: MALIGNANT MELANOMA
     Dosage: 180 MG/DAY
     Route: 042
     Dates: start: 20051108, end: 20051112
  4. NIDRAN [Suspect]
     Indication: MALIGNANT MELANOMA
     Dosage: 100 MG/DAY
     Route: 042
     Dates: start: 20051108, end: 20051108
  5. ONCOVIN [Suspect]
     Indication: MALIGNANT MELANOMA
     Dosage: 1 MG/DAY
     Route: 042
     Dates: start: 20051108, end: 20051108
  6. FERON [Suspect]
     Indication: MALIGNANT MELANOMA
     Dosage: 3000000 IU/DAY
     Route: 058
     Dates: start: 20051108, end: 20051112
  7. NORVASC [Concomitant]
     Indication: HYPERTENSION
     Dosage: 5 MG/DAY
     Route: 048
     Dates: end: 20051112
  8. TOWAMIN [Concomitant]
     Indication: HYPERTENSION
     Dosage: 50 MG/DAY
     Route: 048
     Dates: end: 20051112
  9. LIPITOR [Concomitant]
     Indication: HYPERLIPIDAEMIA
     Dosage: 10 MG/DAY
     Route: 048
     Dates: end: 20051112
  10. VOGLIBOSE [Concomitant]
     Indication: DIABETES MELLITUS
     Dosage: 0.6 MG/DAY
     Route: 048
     Dates: end: 20051112

REACTIONS (28)
  - ALANINE AMINOTRANSFERASE INCREASED [None]
  - ASPARTATE AMINOTRANSFERASE INCREASED [None]
  - BLOOD BILIRUBIN INCREASED [None]
  - BLOOD CREATININE INCREASED [None]
  - BLOOD LACTATE DEHYDROGENASE INCREASED [None]
  - BLOOD UREA INCREASED [None]
  - C-REACTIVE PROTEIN INCREASED [None]
  - DISSEMINATED INTRAVASCULAR COAGULATION [None]
  - DYSPNOEA [None]
  - ERYTHEMA [None]
  - GAMMA-GLUTAMYLTRANSFERASE INCREASED [None]
  - HAEMOGLOBIN DECREASED [None]
  - LABORATORY TEST ABNORMAL [None]
  - LUNG INFILTRATION [None]
  - LYMPHOCYTE COUNT DECREASED [None]
  - LYMPHOCYTE STIMULATION TEST POSITIVE [None]
  - MONOCYTE COUNT DECREASED [None]
  - NEUTROPHIL COUNT INCREASED [None]
  - OLIGURIA [None]
  - OXYGEN SATURATION DECREASED [None]
  - PLATELET COUNT DECREASED [None]
  - PLEURAL EFFUSION [None]
  - PYREXIA [None]
  - RASH MACULAR [None]
  - RENAL FAILURE [None]
  - THORACIC CAVITY DRAINAGE [None]
  - URINE OUTPUT DECREASED [None]
  - WHITE BLOOD CELL COUNT INCREASED [None]
